FAERS Safety Report 18393815 (Version 1)
Quarter: 2020Q4

REPORT INFORMATION
  Report Type: Spontaneous
  Country: US (occurrence: US)
  Receive Date: 20201016
  Receipt Date: 20201016
  Transmission Date: 20210114
  Serious: Yes (Death, Other)
  Sender: FDA-Public Use
  Company Number: US-FRESENIUS KABI-FK202010760

PATIENT
  Age: 57 Year
  Sex: Male
  Weight: 112 kg

DRUGS (5)
  1. HEPARIN SODIUM INJECTION, USP [Suspect]
     Active Substance: HEPARIN SODIUM
     Dosage: 37000 UNITS TOTAL ON 21SEP2020
     Dates: start: 20200921, end: 20200921
  2. HEPARIN [Suspect]
     Active Substance: HEPARIN SODIUM
     Indication: PRODUCT USED FOR UNKNOWN INDICATION
     Dosage: 25000 UNITS PER 250ML
     Dates: start: 20200921, end: 20200923
  3. HEPARIN SODIUM INJECTION, USP [Suspect]
     Active Substance: HEPARIN SODIUM
     Dosage: 37000 UNITS TOTAL ON 23SEP2020
     Dates: start: 20200923, end: 20200923
  4. HEPARIN SODIUM INJECTION, USP [Suspect]
     Active Substance: HEPARIN SODIUM
     Dosage: 37000 UNITS TOTAL ON 23SEP2020
     Dates: start: 20200923, end: 20200923
  5. HEPARIN SODIUM INJECTION, USP [Suspect]
     Active Substance: HEPARIN SODIUM
     Indication: PRODUCT USED FOR UNKNOWN INDICATION
     Dosage: 37000 UNITS TOTAL ON 21SEP2020
     Dates: start: 20200921, end: 20200921

REACTIONS (1)
  - Pulmonary embolism [Fatal]

NARRATIVE: CASE EVENT DATE: 20200923
